FAERS Safety Report 16025106 (Version 2)
Quarter: 2019Q4

REPORT INFORMATION
  Report Type: Spontaneous
  Country: US (occurrence: US)
  Receive Date: 20190301
  Receipt Date: 20191114
  Transmission Date: 20200122
  Serious: No
  Sender: FDA-Public Use
  Company Number: US-SA-2019SA056655

PATIENT
  Sex: Female
  Weight: 65.7 kg

DRUGS (4)
  1. PIMECROLIMUS. [Concomitant]
     Active Substance: PIMECROLIMUS
  2. DUPIXENT [Suspect]
     Active Substance: DUPILUMAB
     Indication: DERMATITIS ATOPIC
     Dosage: 300 MG, QOW
     Route: 058
     Dates: start: 20181001
  3. METHOTREXATE. [Concomitant]
     Active Substance: METHOTREXATE
  4. LOCOID [Concomitant]
     Active Substance: HYDROCORTISONE BUTYRATE

REACTIONS (5)
  - Abdominal distension [Unknown]
  - Pain [Unknown]
  - Fatigue [Unknown]
  - Eyelid irritation [Unknown]
  - Weight increased [Unknown]
